FAERS Safety Report 19180315 (Version 1)
Quarter: 2021Q2

REPORT INFORMATION
  Report Type: Spontaneous
  Country: US (occurrence: US)
  Receive Date: 20210426
  Receipt Date: 20210426
  Transmission Date: 20210717
  Serious: No
  Sender: FDA-Public Use
  Company Number: US-PFIZER INC-2020484065

PATIENT
  Age: 67 Year
  Sex: Male

DRUGS (1)
  1. BRAFTOVI [Suspect]
     Active Substance: ENCORAFENIB
     Dosage: 300 MG, DAILY (FOUR CAPSULES)
     Route: 048

REACTIONS (1)
  - Hypoacusis [Unknown]
